FAERS Safety Report 22043590 (Version 2)
Quarter: 2023Q4

REPORT INFORMATION
  Report Type: Other
  Country: US (occurrence: None)
  Receive Date: 20230228
  Receipt Date: 20231211
  Transmission Date: 20240110
  Serious: Yes (Other)
  Sender: FDA-Public Use
  Company Number: US-ROCHE-2525222

PATIENT
  Sex: Female

DRUGS (1)
  1. CELLCEPT [Suspect]
     Active Substance: MYCOPHENOLATE MOFETIL
     Indication: Systemic lupus erythematosus
     Dosage: 200MG/ML ORAL SUSPENSION
     Route: 065

REACTIONS (4)
  - Paraplegia [Unknown]
  - Product use in unapproved indication [Unknown]
  - Speech disorder [Unknown]
  - Product prescribing error [Unknown]
